FAERS Safety Report 8327743 (Version 2)
Quarter: 2014Q3

REPORT INFORMATION
  Report Type: Spontaneous
  Country: CA (occurrence: CA)
  Receive Date: 20120109
  Receipt Date: 20140820
  Transmission Date: 20150326
  Serious: Yes (Life-Threatening, Other)
  Sender: FDA-Public Use
  Company Number: CA-BAYER-2012-001853

PATIENT
  Age: 58 Year
  Sex: Male

DRUGS (1)
  1. MIRENA [Suspect]
     Active Substance: LEVONORGESTREL
     Indication: MENORRHAGIA
     Dosage: UNK

REACTIONS (8)
  - Type I hypersensitivity [None]
  - Erythema [None]
  - Urticaria [None]
  - Local swelling [None]
  - Angioedema [None]
  - Dermatitis contact [None]
  - Dyspareunia [None]
  - Swelling face [None]

NARRATIVE: CASE EVENT DATE: 201106
